FAERS Safety Report 24428236 (Version 1)
Quarter: 2024Q4

REPORT INFORMATION
  Report Type: Spontaneous
  Country: CA (occurrence: CA)
  Receive Date: 20241011
  Receipt Date: 20241011
  Transmission Date: 20250114
  Serious: Yes (Other)
  Sender: PFIZER
  Company Number: CA-PFIZER INC-202400274402

PATIENT
  Sex: Male

DRUGS (3)
  1. SULFASALAZINE [Suspect]
     Active Substance: SULFASALAZINE
     Dosage: 1000 MG, 2X/DAY
     Route: 065
  2. COSENTYX [Suspect]
     Active Substance: SECUKINUMAB
     Dosage: 1 EVERY 4 WEEKS
     Route: 065
  3. DALFAMPRIDINE [Suspect]
     Active Substance: DALFAMPRIDINE
     Dosage: 10 MG, 2X/DAY
     Route: 065

REACTIONS (4)
  - Arthritis [Unknown]
  - Condition aggravated [Unknown]
  - Gait disturbance [Unknown]
  - Multiple sclerosis [Unknown]
